FAERS Safety Report 4673479-8 (Version None)
Quarter: 2005Q2

REPORT INFORMATION
  Report Type: 
  Country: None (occurrence: None)
  Receive Date: 20050525
  Receipt Date: 20050325
  Transmission Date: 20051028
  Serious: No
  Sender: FDA-Public Use
  Company Number: US-GLAXOSMITHKLINE-A0551310A

PATIENT
  Sex: Male

DRUGS (2)
  1. EPZICOM [Suspect]
     Indication: HIV INFECTION
     Dosage: 1TAB PER DAY
     Route: 048
  2. COLD MEDICATION [Concomitant]

REACTIONS (4)
  - ABDOMINAL DISCOMFORT [None]
  - HYPERSENSITIVITY [None]
  - MALAISE [None]
  - NASOPHARYNGITIS [None]
